FAERS Safety Report 7154361-3 (Version None)
Quarter: 2010Q4

REPORT INFORMATION
  Report Type: 
  Country: None (occurrence: None)
  Receive Date: 20101213
  Receipt Date: 20101201
  Transmission Date: 20110411
  Serious: Yes (Hospitalization)
  Sender: FDA-Public Use
  Company Number: JP-WATSON-2010-15764

PATIENT
  Age: 62 Year
  Sex: Male

DRUGS (1)
  1. ZONISAMIDE (WATSON LABORATORIES) [Suspect]
     Indication: EPILEPSY
     Dosage: UNK
     Dates: start: 20080701

REACTIONS (2)
  - CYTOMEGALOVIRUS INFECTION [None]
  - DRUG RASH WITH EOSINOPHILIA AND SYSTEMIC SYMPTOMS [None]
